FAERS Safety Report 4324777-9 (Version None)
Quarter: 2004Q1

REPORT INFORMATION
  Report Type: 
  Country: None (occurrence: None)
  Receive Date: 20040326
  Receipt Date: 20040317
  Transmission Date: 20041129
  Serious: Yes (Other)
  Sender: FDA-Public Use
  Company Number: US-GLAXOSMITHKLINE-A0503213A

PATIENT
  Age: 34 Year
  Sex: Female

DRUGS (3)
  1. ADVAIR DISKUS 100/50 [Suspect]
     Indication: ASTHMA
     Dosage: 1PUFF TWICE PER DAY
     Route: 055
     Dates: start: 20030401
  2. ALBUTEROL [Concomitant]
  3. FLONASE [Concomitant]

REACTIONS (2)
  - ECTOPIC PREGNANCY [None]
  - UNEXPECTED THERAPEUTIC DRUG EFFECT [None]
